FAERS Safety Report 8845318 (Version 2)
Quarter: 2012Q4

REPORT INFORMATION
  Report Type: 
  Country: US (occurrence: US)
  Receive Date: 20121017
  Receipt Date: 20121122
  Transmission Date: 20130627
  Serious: Yes (Other)
  Sender: FDA-Public Use
  Company Number: US-B.I. PHARMACEUTICALS,INC./RIDGEFIELD-2012-BP-25326BP

PATIENT
  Age: 52 Year
  Sex: Male
  Weight: 122.47 kg

DRUGS (2)
  1. PRADAXA [Suspect]
     Indication: ATRIAL FIBRILLATION
     Dosage: 300 mg
     Route: 048
  2. SOTALOL [Concomitant]
     Indication: ATRIAL FIBRILLATION

REACTIONS (2)
  - Pericardial effusion [Recovered/Resolved]
  - Viral infection [Unknown]
